FAERS Safety Report 6499865-1 (Version None)
Quarter: 2009Q4

REPORT INFORMATION
  Report Type: 
  Country: None (occurrence: None)
  Receive Date: 20091214
  Receipt Date: 20091214
  Transmission Date: 20100525
  Serious: Yes (Life-Threatening)
  Sender: FDA-Public Use
  Company Number: None

PATIENT
  Sex: Female
  Weight: 84.5 kg

DRUGS (1)
  1. RECOTHROM [Suspect]
     Indication: VASCULAR PSEUDOANEURYSM
     Dosage: 2000 ONCE TOP
     Route: 061
     Dates: start: 20091204, end: 20091204

REACTIONS (2)
  - INJECTION SITE EXTRAVASATION [None]
  - THROMBOSIS [None]
